FAERS Safety Report 5444778-7 (Version None)
Quarter: 2007Q3

REPORT INFORMATION
  Report Type: 
  Country: None (occurrence: None)
  Receive Date: 20070827
  Receipt Date: 20070813
  Transmission Date: 20080115
  Serious: Yes (Other)
  Sender: FDA-Public Use
  Company Number: 2007324333

PATIENT
  Age: 76 Year
  Sex: Female

DRUGS (3)
  1. KALCITENA (CALCIUM CARBONATE) [Suspect]
     Indication: OSTEOPENIA
     Dosage: 1 TABLET TWICE DAILY ORAL
     Route: 048
     Dates: start: 19920101, end: 20070613
  2. PULMICORT [Concomitant]
  3. BRICANYL [Concomitant]

REACTIONS (1)
  - ANAPHYLACTIC SHOCK [None]
